FAERS Safety Report 7497491-9 (Version None)
Quarter: 2011Q2

REPORT INFORMATION
  Report Type: 
  Country: None (occurrence: None)
  Receive Date: 20110523
  Receipt Date: 20110509
  Transmission Date: 20111010
  Serious: Yes (Other)
  Sender: FDA-Public Use
  Company Number: FR-UCBSA-029415

PATIENT
  Sex: Male
  Weight: 70 kg

DRUGS (3)
  1. UNSPECIFIED ANTI-ASTHMATIC DRUG [Concomitant]
     Indication: ASTHMA
  2. XYZAL [Suspect]
     Indication: HYPERSENSITIVITY
     Dosage: 1 TABLET DAILY AT NIGHT
     Route: 048
     Dates: start: 20110303, end: 20110317
  3. SYMBICORT [Concomitant]
     Dates: start: 20110302

REACTIONS (3)
  - HYPOTENSION [None]
  - PAPILLOEDEMA [None]
  - OPTIC ISCHAEMIC NEUROPATHY [None]
